FAERS Safety Report 4890852-3 (Version None)
Quarter: 2005Q4

REPORT INFORMATION
  Report Type: 
  Country: None (occurrence: None)
  Receive Date: 20051220
  Receipt Date: 20051111
  Transmission Date: 20060501
  Serious: Yes (Other)
  Sender: FDA-Public Use
  Company Number: 424843

PATIENT
  Sex: Female

DRUGS (2)
  1. BONIVA [Suspect]
     Dates: start: 20051108
  2. TUMS (CALCIUM CARBONATE) [Suspect]
     Dosage: 50 MG

REACTIONS (6)
  - ABDOMINAL PAIN UPPER [None]
  - BONE PAIN [None]
  - DIARRHOEA [None]
  - FLATULENCE [None]
  - HEADACHE [None]
  - PAIN [None]
